FAERS Safety Report 8369273-7 (Version None)
Quarter: 2012Q2

REPORT INFORMATION
  Report Type: 
  Country: None (occurrence: None)
  Receive Date: 20120518
  Receipt Date: 20120511
  Transmission Date: 20120825
  Serious: Yes (Other)
  Sender: FDA-Public Use
  Company Number: PHHY2012EC039241

PATIENT
  Sex: Female

DRUGS (1)
  1. DIOVAN [Suspect]
     Indication: HYPERTENSION
     Dosage: 1 DF (160 MG VALSARTAN), DAILY
     Route: 048
     Dates: start: 20090101

REACTIONS (3)
  - OCULAR HYPERAEMIA [None]
  - OCULAR NEOPLASM [None]
  - EYE DISORDER [None]
